FAERS Safety Report 4524564-2 (Version None)
Quarter: 2004Q4

REPORT INFORMATION
  Report Type: 
  Country: None (occurrence: None)
  Receive Date: 20041117
  Receipt Date: 20040713
  Transmission Date: 20050328
  Serious: Yes (Hospitalization, Other)
  Sender: FDA-Public Use
  Company Number: US-JNJFOC-20040400438

PATIENT
  Age: 54 Year
  Sex: Male
  Weight: 96.1626 kg

DRUGS (4)
  1. LEVAQUIN [Suspect]
     Indication: PNEUMONIA
     Dosage: 500 MG, 1 IN 1 DAY, ORAL
     Route: 048
     Dates: start: 20040212, end: 20040221
  2. LEVAQUIN [Suspect]
     Indication: PNEUMONIA
     Dosage: 500 MG, 1 IN 1 DAY, ORAL
     Route: 048
     Dates: start: 20040227, end: 20040305
  3. ADVAIR (AEROSOLS) SERETIDE MITE [Concomitant]
  4. COMBIVENT (SPRAY) COMBIVENT [Concomitant]

REACTIONS (5)
  - ASCITES [None]
  - DRUG INEFFECTIVE [None]
  - DYSPNOEA [None]
  - OEDEMA PERIPHERAL [None]
  - PLEURAL EFFUSION [None]
